FAERS Safety Report 25665170 (Version 1)
Quarter: 2025Q3

REPORT INFORMATION
  Report Type: Spontaneous
  Country: US (occurrence: None)
  Receive Date: 20250809
  Receipt Date: 20250809
  Transmission Date: 20251020
  Serious: Yes (Other)
  Sender: FDA-CTU
  Company Number: None

PATIENT
  Age: 23 Year
  Sex: Female

DRUGS (1)
  1. PAROXETINE [Suspect]
     Active Substance: PAROXETINE
     Dosage: FREQUENCY : DAILY;?
     Route: 048
     Dates: start: 20250715

REACTIONS (2)
  - Dyskinesia [None]
  - Weight increased [None]

NARRATIVE: CASE EVENT DATE: 20250801
